FAERS Safety Report 23606334 (Version 1)
Quarter: 2024Q1

REPORT INFORMATION
  Report Type: Spontaneous
  Country: US (occurrence: US)
  Receive Date: 20240307
  Receipt Date: 20240307
  Transmission Date: 20240409
  Serious: No
  Sender: FDA-Public Use
  Company Number: US-BRISTOL-MYERS SQUIBB COMPANY-2024-036845

PATIENT
  Age: 62 Year
  Sex: Male

DRUGS (1)
  1. POMALYST [Suspect]
     Active Substance: POMALIDOMIDE
     Indication: Stomatitis
     Route: 048
     Dates: start: 20240113

REACTIONS (4)
  - White blood cell count decreased [Unknown]
  - Constipation [Unknown]
  - Neutrophil count decreased [Unknown]
  - Off label use [Unknown]
